FAERS Safety Report 9942841 (Version 1)
Quarter: 2014Q1

REPORT INFORMATION
  Report Type: Report from Study
  Country: US (occurrence: US)
  Receive Date: 20140303
  Receipt Date: 20140303
  Transmission Date: 20141002
  Serious: No
  Sender: FDA-Public Use
  Company Number: US-ABBVIE-13P-163-1044529-00

PATIENT
  Age: 52 Year
  Sex: Female

DRUGS (1)
  1. HUMIRA [Suspect]
     Indication: RHEUMATOID ARTHRITIS
     Dates: start: 200911, end: 201301

REACTIONS (6)
  - Viral infection [Unknown]
  - Viral infection [Unknown]
  - Viral infection [Unknown]
  - Asthma [Unknown]
  - Bronchitis [Unknown]
  - Lobar pneumonia [Unknown]
